FAERS Safety Report 8714633 (Version 2)
Quarter: 2013Q1

REPORT INFORMATION
  Report Type: Spontaneous
  Country: BR (occurrence: BR)
  Receive Date: 20120809
  Receipt Date: 20130124
  Transmission Date: 20140127
  Serious: Yes (Other)
  Sender: FDA-Public Use
  Company Number: PHHY2012BR067973

PATIENT
  Sex: Female

DRUGS (4)
  1. DIOVAN AMLO [Suspect]
     Indication: HYPERTENSION
     Dosage: 1 DF, BID (160 MG OF VALS/UNK MG OF AMLO)
     Route: 048
  2. VITAMIN D NOS [Concomitant]
     Indication: VITAMIN SUPPLEMENTATION
     Dosage: 1 DF, DAILY
     Route: 048
  3. LANTUS [Concomitant]
     Indication: DIABETES MELLITUS
     Dosage: 1 DF, DAILY
     Route: 030
  4. HUMALOG [Concomitant]
     Indication: DIABETES MELLITUS
     Dosage: 1 DF, DAILY
     Route: 030

REACTIONS (5)
  - Breast cancer [Recovered/Resolved]
  - Neoplasm malignant [Recovering/Resolving]
  - Renal failure chronic [Not Recovered/Not Resolved]
  - Blood pressure systolic increased [Recovering/Resolving]
  - Drug ineffective [Recovering/Resolving]
